FAERS Safety Report 21945065 (Version 1)
Quarter: 2023Q1

REPORT INFORMATION
  Report Type: Spontaneous
  Country: US (occurrence: US)
  Receive Date: 20230202
  Receipt Date: 20230202
  Transmission Date: 20230417
  Serious: No
  Sender: FDA-Public Use
  Company Number: US-GUERBET-US-20220037

PATIENT
  Sex: Female

DRUGS (1)
  1. DOTAREM [Suspect]
     Active Substance: GADOTERATE MEGLUMINE
     Indication: Magnetic resonance imaging
     Route: 065
     Dates: start: 20220425, end: 20220425

REACTIONS (11)
  - Head discomfort [Recovering/Resolving]
  - Facial pain [Recovering/Resolving]
  - Tinnitus [Recovering/Resolving]
  - Dry eye [Recovering/Resolving]
  - Musculoskeletal stiffness [Recovering/Resolving]
  - Restlessness [Recovering/Resolving]
  - Malaise [Recovering/Resolving]
  - Hot flush [Recovering/Resolving]
  - Chills [Recovering/Resolving]
  - Nausea [Recovering/Resolving]
  - Dizziness [Recovering/Resolving]

NARRATIVE: CASE EVENT DATE: 20220425
